FAERS Safety Report 18219181 (Version 2)
Quarter: 2020Q4

REPORT INFORMATION
  Report Type: Spontaneous
  Country: SG (occurrence: SG)
  Receive Date: 20200901
  Receipt Date: 20201008
  Transmission Date: 20210113
  Serious: No
  Sender: FDA-Public Use
  Company Number: SG-TOLMAR, INC.-20SG022555

PATIENT
  Sex: Male

DRUGS (1)
  1. ELIGARD [Suspect]
     Active Substance: LEUPROLIDE ACETATE
     Indication: PRODUCT USED FOR UNKNOWN INDICATION
     Dosage: 22.5, UNKNOWN FREQUENCY
     Route: 065

REACTIONS (4)
  - Device leakage [Unknown]
  - Product administration error [Unknown]
  - Syringe issue [Unknown]
  - Wrong technique in product usage process [Unknown]
